FAERS Safety Report 4785680-3 (Version None)
Quarter: 2005Q3

REPORT INFORMATION
  Report Type: 
  Country: None (occurrence: None)
  Receive Date: 20050929
  Receipt Date: 20050914
  Transmission Date: 20060218
  Serious: Yes (Other)
  Sender: FDA-Public Use
  Company Number: 05-08-1487

PATIENT
  Age: 43 Year
  Sex: Female

DRUGS (3)
  1. CLOZAPINE [Suspect]
     Indication: SCHIZOPHRENIA
     Dosage: 25-475MG QD, ORAL
     Route: 048
     Dates: start: 20050401, end: 20050801
  2. CLOZAPINE [Suspect]
     Indication: SCHIZOPHRENIA
     Dosage: 25-475MG QD, ORAL
     Route: 048
     Dates: start: 20050901
  3. CHEMOTHERAPY (UNKNOWN) [Suspect]
     Indication: BREAST CANCER
     Dosage: UNKNOWN
     Route: 065

REACTIONS (1)
  - LEUKOPENIA [None]
